FAERS Safety Report 9506416 (Version 2)
Quarter: 2014Q1

REPORT INFORMATION
  Report Type: Spontaneous
  Country: US (occurrence: None)
  Receive Date: 20130305
  Receipt Date: 20140306
  Transmission Date: 20141002
  Serious: Yes (Disabling, Other)
  Sender: FDA-Public Use
  Company Number: 163-21880-11091404

PATIENT
  Age: 68 Year
  Sex: Female

DRUGS (9)
  1. REVLIMID (LENALIDOMIDE) (CAPSULES) [Suspect]
     Indication: PLASMA CELL MYELOMA
     Dosage: 25 MG, 14 IN 21 D, PO
     Route: 048
     Dates: start: 201107
  2. LIPITOR (ATORVASTATIN) [Concomitant]
  3. CHEMOTHERAPY (CHEMOTHERAPEUTICS) [Concomitant]
  4. NEXIUM (ESOMEPRAZOLE) [Concomitant]
  5. SYNTHROID (LEVOTHYROXINE SODIUM) [Concomitant]
  6. CALTRATE (CALCIUM CARBONATE) [Concomitant]
  7. LORATADINE [Concomitant]
  8. VITAMIN D (ERGOCALCIFEROL) [Concomitant]
  9. ASPIRIN [Concomitant]

REACTIONS (5)
  - Neuropathy peripheral [None]
  - Paraesthesia [None]
  - Rash [None]
  - Pruritus [None]
  - Dyspnoea [None]
